FAERS Safety Report 12821517 (Version 3)
Quarter: 2016Q4

REPORT INFORMATION
  Report Type: Spontaneous
  Country: US (occurrence: US)
  Receive Date: 20161007
  Receipt Date: 20161202
  Transmission Date: 20170207
  Serious: No
  Sender: FDA-Public Use
  Company Number: US-BRISTOL-MYERS SQUIBB COMPANY-BMS-2016-079833

PATIENT
  Sex: Male

DRUGS (1)
  1. OPDIVO [Suspect]
     Active Substance: NIVOLUMAB
     Indication: NON-SMALL CELL LUNG CANCER
     Dosage: 220 MG, Q2WK
     Route: 042
     Dates: start: 20160720

REACTIONS (11)
  - Respiration abnormal [Unknown]
  - Rhinorrhoea [Unknown]
  - Dyspnoea [Unknown]
  - Body temperature decreased [Unknown]
  - Eye pruritus [Unknown]
  - Disturbance in attention [Unknown]
  - Nasal pruritus [Unknown]
  - Bone pain [Unknown]
  - Myalgia [Unknown]
  - Chest pain [Unknown]
  - Weight decreased [Unknown]
